FAERS Safety Report 5724573-1 (Version None)
Quarter: 2008Q2

REPORT INFORMATION
  Report Type: 
  Country: None (occurrence: None)
  Receive Date: 20080430
  Receipt Date: 20080430
  Transmission Date: 20081010
  Serious: Yes (Life-Threatening)
  Sender: FDA-Public Use
  Company Number: None

PATIENT
  Age: 75 Year
  Sex: Female
  Weight: 113.3993 kg

DRUGS (1)
  1. DIGITEK 250MCG BERTEK PHARMACEUTICAL [Suspect]
     Indication: ATRIAL FIBRILLATION
     Dosage: 1 TABLET DAILY PO
     Route: 048
     Dates: start: 20080325, end: 20080429

REACTIONS (8)
  - ATRIAL FIBRILLATION [None]
  - DIARRHOEA [None]
  - DIZZINESS POSTURAL [None]
  - FATIGUE [None]
  - HEART RATE DECREASED [None]
  - MALAISE [None]
  - NAUSEA [None]
  - PHARMACEUTICAL PRODUCT COMPLAINT [None]
